FAERS Safety Report 5041639-2 (Version None)
Quarter: 2006Q2

REPORT INFORMATION
  Report Type: 
  Country: None (occurrence: None)
  Receive Date: 20060601
  Receipt Date: 20060228
  Transmission Date: 20061013
  Serious: No
  Sender: FDA-Public Use
  Company Number: 2006PV009451

PATIENT
  Age: 55 Year
  Sex: Female

DRUGS (6)
  1. BYETTA [Suspect]
     Indication: DIABETES MELLITUS NON-INSULIN-DEPENDENT
     Dosage: 5 MCG; BID; SC
     Route: 058
     Dates: start: 20060216
  2. NOVOLIN [Concomitant]
  3. HUMALOG [Concomitant]
  4. ACTOS [Concomitant]
  5. SKELAXIN [Concomitant]
  6. CELEBREX [Concomitant]

REACTIONS (5)
  - CONSTIPATION [None]
  - DECREASED APPETITE [None]
  - FEELING JITTERY [None]
  - HYPOGLYCAEMIA [None]
  - NAUSEA [None]
